FAERS Safety Report 8031411-3 (Version None)
Quarter: 2012Q1

REPORT INFORMATION
  Report Type: 
  Country: None (occurrence: None)
  Receive Date: 20120109
  Receipt Date: 20120106
  Transmission Date: 20120608
  Serious: Yes (Hospitalization)
  Sender: FDA-Public Use
  Company Number: DK-ABBOTT-11P-044-0886265-00

PATIENT
  Sex: Female
  Weight: 67 kg

DRUGS (1)
  1. HUMIRA [Suspect]
     Indication: PSORIATIC ARTHROPATHY
     Dates: start: 20111220

REACTIONS (13)
  - DIZZINESS [None]
  - HYPERSENSITIVITY [None]
  - GENERALISED OEDEMA [None]
  - GENERALISED ERYTHEMA [None]
  - MUSCLE TIGHTNESS [None]
  - RASH GENERALISED [None]
  - MIGRAINE [None]
  - VOMITING [None]
  - MYALGIA [None]
  - PALLOR [None]
  - ABDOMINAL PAIN UPPER [None]
  - DYSGEUSIA [None]
  - CONFUSIONAL STATE [None]
